FAERS Safety Report 9385183 (Version 1)
Quarter: 2013Q3

REPORT INFORMATION
  Report Type: Spontaneous
  Country: US (occurrence: US)
  Receive Date: 20130705
  Receipt Date: 20130705
  Transmission Date: 20140515
  Serious: Yes (Other)
  Sender: FDA-Public Use
  Company Number: PHEH2013US014271

PATIENT
  Sex: 0

DRUGS (1)
  1. GILENYA [Suspect]
     Route: 048

REACTIONS (5)
  - Arthralgia [Recovering/Resolving]
  - Urinary tract infection [Unknown]
  - Red blood cell sedimentation rate increased [Recovering/Resolving]
  - Neutrophil count increased [Recovering/Resolving]
  - Pyrexia [Recovering/Resolving]
